FAERS Safety Report 13858114 (Version 1)
Quarter: 2017Q3

REPORT INFORMATION
  Report Type: Spontaneous
  Country: TR (occurrence: TR)
  Receive Date: 20170811
  Receipt Date: 20170811
  Transmission Date: 20171127
  Serious: Yes (Life-Threatening, Hospitalization)
  Sender: FDA-Public Use
  Company Number: TR-LPDUSPRD-20170637

PATIENT
  Age: 73 Year
  Sex: Male
  Weight: 73 kg

DRUGS (1)
  1. FERINJECT [Suspect]
     Active Substance: FERRIC CARBOXYMALTOSE
     Dosage: 1000 MG
     Route: 042
     Dates: start: 20170505, end: 20170505

REACTIONS (4)
  - Generalised erythema [Unknown]
  - Myalgia [Unknown]
  - Pruritus generalised [Unknown]
  - Hypotension [Unknown]

NARRATIVE: CASE EVENT DATE: 20170505
